FAERS Safety Report 14924275 (Version 1)
Quarter: 2018Q2

REPORT INFORMATION
  Report Type: Spontaneous
  Country: US (occurrence: US)
  Receive Date: 20180503
  Receipt Date: 20180503
  Transmission Date: 20180711
  Serious: Yes (Hospitalization, Disabling)
  Sender: FDA-Public Use
  Company Number: None

PATIENT
  Age: 79 Year
  Sex: Female
  Weight: 72 kg

DRUGS (15)
  1. PHENOBARBITAL. [Concomitant]
     Active Substance: PHENOBARBITAL
  2. ALPRAZOLAM. [Concomitant]
     Active Substance: ALPRAZOLAM
  3. VITAMIN D [Concomitant]
     Active Substance: CHOLECALCIFEROL
  4. CEFEPIME [Suspect]
     Active Substance: CEFEPIME HYDROCHLORIDE
     Indication: PSEUDOMONAS INFECTION
     Dosage: ?          QUANTITY:2 GRAMS;?
     Route: 042
     Dates: start: 20180427, end: 20180501
  5. LISINOPRIL. [Concomitant]
     Active Substance: LISINOPRIL
  6. KEPPRA [Concomitant]
     Active Substance: LEVETIRACETAM
  7. MUCINEX DM [Concomitant]
     Active Substance: DEXTROMETHORPHAN HYDROBROMIDE\GUAIFENESIN
  8. DELSYM [Concomitant]
     Active Substance: DEXTROMETHORPHAN
  9. SINGULAIR [Concomitant]
     Active Substance: MONTELUKAST SODIUM
  10. FLECAINIDE [Concomitant]
     Active Substance: FLECAINIDE
  11. CARVEDILOL. [Concomitant]
     Active Substance: CARVEDILOL
  12. ACETAMINOPHEN. [Concomitant]
     Active Substance: ACETAMINOPHEN
  13. LORATADINE. [Concomitant]
     Active Substance: LORATADINE
  14. PACEMAKER [Concomitant]
  15. PRAVASTATIN. [Concomitant]
     Active Substance: PRAVASTATIN

REACTIONS (8)
  - Neurotoxicity [None]
  - Dyskinesia [None]
  - Confusional state [None]
  - Myoclonus [None]
  - Mental status changes [None]
  - Hallucination [None]
  - Syncope [None]
  - Aphasia [None]

NARRATIVE: CASE EVENT DATE: 20180430
